FAERS Safety Report 8799684 (Version 2)
Quarter: 2013Q1

REPORT INFORMATION
  Report Type: Report from Study
  Country: JP (occurrence: JP)
  Receive Date: 20120919
  Receipt Date: 20130201
  Transmission Date: 20140127
  Serious: Yes (Other)
  Sender: FDA-Public Use
  Company Number: JP-009507513-2012SP033840

PATIENT
  Age: 64 Year
  Sex: Female
  Weight: 54 kg

DRUGS (9)
  1. PEGINTRON [Suspect]
     Indication: CHRONIC HEPATITIS C
     Dosage: 1.5 MICROGRAM PER KILOGRAM, QW
     Route: 058
     Dates: start: 20120222, end: 20120801
  2. REBETOL [Suspect]
     Indication: CHRONIC HEPATITIS C
     Dosage: 600 MG, QD
     Route: 048
     Dates: start: 20120222, end: 20120403
  3. REBETOL [Suspect]
     Dosage: 400 MG, QD
     Route: 048
     Dates: start: 20120404, end: 20120502
  4. REBETOL [Suspect]
     Dosage: 200 MG, QD
     Route: 048
     Dates: start: 20120516, end: 20120801
  5. TELAVIC [Suspect]
     Indication: CHRONIC HEPATITIS C
     Dosage: 2250 MG, QD
     Route: 048
     Dates: start: 20120222, end: 20120515
  6. URSO [Concomitant]
     Indication: CHRONIC HEPATITIS C
     Dosage: 600 MG, QD, FORMULATION:POR
     Route: 048
     Dates: end: 20120418
  7. ALLELOCK [Concomitant]
     Dosage: 10 MG, QD.FORMULATION:POR
     Route: 048
     Dates: start: 20120411
  8. PRIMPERAN [Concomitant]
     Indication: PROPHYLAXIS
     Dosage: 10 MG, PRN,IV UNSPECIFIED.
     Route: 042
     Dates: start: 20120404
  9. SOLDEM 3A [Concomitant]
     Indication: PROPHYLAXIS
     Dosage: 500 ML/DAY , PRN,IV UNSPECIFIEDN
     Route: 042
     Dates: start: 20120404

REACTIONS (2)
  - Anaemia [Recovered/Resolved]
  - Haemoglobin decreased [Recovering/Resolving]
